FAERS Safety Report 18558055 (Version 1)
Quarter: 2020Q4

REPORT INFORMATION
  Report Type: Spontaneous
  Country: US (occurrence: US)
  Receive Date: 20201130
  Receipt Date: 20201130
  Transmission Date: 20210114
  Serious: No
  Sender: FDA-Public Use
  Company Number: US-DRREDDYS-USA/USA/20/0129040

PATIENT
  Sex: Male

DRUGS (3)
  1. NUPERCAINAL [Suspect]
     Active Substance: DIBUCAINE
     Indication: THERMAL BURN
  2. PREPARATION H OINTMENT [Concomitant]
     Active Substance: MINERAL OIL\PETROLATUM\PHENYLEPHRINE HYDROCHLORIDE
     Indication: HAEMORRHOIDS
     Route: 061
  3. NUPERCAINAL [Suspect]
     Active Substance: DIBUCAINE
     Indication: HAEMORRHOIDS
     Route: 061

REACTIONS (1)
  - Product use in unapproved indication [Unknown]
